FAERS Safety Report 7503941-1 (Version None)
Quarter: 2011Q2

REPORT INFORMATION
  Report Type: 
  Country: None (occurrence: None)
  Receive Date: 20110525
  Receipt Date: 20110516
  Transmission Date: 20111010
  Serious: Yes (Hospitalization)
  Sender: FDA-Public Use
  Company Number: PHHY2011FR41392

PATIENT
  Age: 6 Month

DRUGS (1)
  1. ACETYLSALICYLIC ACID SRT [Suspect]

REACTIONS (20)
  - HYPOGLYCAEMIA [None]
  - HYPERHIDROSIS [None]
  - HEPATOMEGALY [None]
  - MOTOR DYSFUNCTION [None]
  - HEPATITIS FULMINANT [None]
  - VOMITING [None]
  - CLONUS [None]
  - PSYCHOMOTOR SKILLS IMPAIRED [None]
  - COUGH [None]
  - PALLOR [None]
  - HEPATIC FUNCTION ABNORMAL [None]
  - EPILEPSY [None]
  - HYPERTHERMIA [None]
  - DECREASED APPETITE [None]
  - CEREBRAL ISCHAEMIA [None]
  - FATIGUE [None]
  - CELL DEATH [None]
  - DIARRHOEA [None]
  - STATUS EPILEPTICUS [None]
  - REYE'S SYNDROME [None]
